FAERS Safety Report 18015874 (Version 3)
Quarter: 2020Q3

REPORT INFORMATION
  Report Type: Spontaneous
  Country: JP (occurrence: JP)
  Receive Date: 20200713
  Receipt Date: 20200814
  Transmission Date: 20201103
  Serious: Yes (Death, Hospitalization, Other)
  Sender: FDA-Public Use
  Company Number: JP-JNJFOC-20200702138

PATIENT
  Age: 92 Year
  Sex: Female

DRUGS (10)
  1. XARELTO [Suspect]
     Active Substance: RIVAROXABAN
     Indication: CEREBROVASCULAR ACCIDENT PROPHYLAXIS
     Dosage: UNK
     Route: 048
     Dates: start: 20200519
  2. PARIET [Concomitant]
     Active Substance: RABEPRAZOLE SODIUM
  3. VASOLAN [ISOXSUPRINE HYDROCHLORIDE] [Concomitant]
     Active Substance: ISOXSUPRINE HYDROCHLORIDE
  4. NORVASC [Concomitant]
     Active Substance: AMLODIPINE BESYLATE
  5. TOCOPHEROL [Concomitant]
     Active Substance: TOCOPHEROL
  6. XARELTO [Suspect]
     Active Substance: RIVAROXABAN
     Indication: ATRIAL FIBRILLATION
     Dosage: UNK
     Route: 048
     Dates: start: 20131219, end: 20200512
  7. FEBURIC [Concomitant]
     Active Substance: FEBUXOSTAT
  8. LOCHOL [ATORVASTATIN CALCIUM] [Concomitant]
  9. OLMETEC [Concomitant]
     Active Substance: OLMESARTAN MEDOXOMIL
  10. DIART [Concomitant]
     Active Substance: AZOSEMIDE

REACTIONS (2)
  - Mesenteric arterial occlusion [Fatal]
  - Cystitis haemorrhagic [Recovering/Resolving]

NARRATIVE: CASE EVENT DATE: 20200511
